FAERS Safety Report 7884597-5 (Version None)
Quarter: 2011Q4

REPORT INFORMATION
  Report Type: 
  Country: None (occurrence: None)
  Receive Date: 20111102
  Receipt Date: 20111028
  Transmission Date: 20120403
  Serious: Yes (Death)
  Sender: FDA-Public Use
  Company Number: US-PFIZER INC-2011264086

PATIENT
  Sex: Male

DRUGS (9)
  1. TAMSULOSIN HYDROCHLORIDE [Concomitant]
     Dosage: 0.4 MG, UNK
  2. ACETYLSALICYLIC ACID [Concomitant]
     Dosage: 81 MG, UNK
  3. ZOLPIDEM [Concomitant]
     Dosage: 5 MG, UNK
  4. ZOFRAN [Concomitant]
     Dosage: 4 MG, UNK
  5. SUTENT [Suspect]
     Dosage: 50 MG DAILY, CYCLE 4/2
     Route: 048
  6. MEGESTROL ACETATE [Concomitant]
     Dosage: 40 MG/ML, UNK
  7. DRONEDARONE [Concomitant]
     Dosage: 400 MG, UNK
  8. LANTUS [Concomitant]
     Dosage: 100/ML, UNK
  9. CALCIUM CARBONATE [Concomitant]
     Dosage: 500 MG, UNK

REACTIONS (1)
  - DEATH [None]
